FAERS Safety Report 15350860 (Version 5)
Quarter: 2019Q2

REPORT INFORMATION
  Report Type: Report from Study
  Country: IL (occurrence: IL)
  Receive Date: 20180905
  Receipt Date: 20190620
  Transmission Date: 20190711
  Serious: Yes (Life-Threatening, Hospitalization, Other)
  Sender: FDA-Public Use
  Company Number: IL-EMD SERONO-9042267

PATIENT
  Sex: Female

DRUGS (6)
  1. TRIBEMIN [Concomitant]
     Active Substance: CYANOCOBALAMIN\PYRIDOXINE HYDROCHLORIDE\THIAMINE
     Indication: PRODUCT USED FOR UNKNOWN INDICATION
  2. PLAVIX [Suspect]
     Active Substance: CLOPIDOGREL BISULFATE
     Indication: CARDIOVASCULAR DISORDER
  3. XELODA [Concomitant]
     Active Substance: CAPECITABINE
     Indication: HEPATIC CANCER
  4. REBIF [Suspect]
     Active Substance: INTERFERON BETA-1A
     Indication: RELAPSING-REMITTING MULTIPLE SCLEROSIS
     Route: 058
     Dates: start: 20100916
  5. OSCAR [Concomitant]
     Indication: HYPERTENSION
  6. XELODA [Concomitant]
     Active Substance: CAPECITABINE
     Indication: COLON CANCER

REACTIONS (15)
  - Hepatic cancer [Recovered/Resolved]
  - Loss of personal independence in daily activities [Unknown]
  - Balance disorder [Recovered/Resolved with Sequelae]
  - Ventricular fibrillation [Unknown]
  - Chest pain [Unknown]
  - Chest discomfort [Unknown]
  - Asthenia [Unknown]
  - Electrocardiogram T wave inversion [Unknown]
  - Fatigue [Unknown]
  - Blood pressure decreased [Unknown]
  - Cardiovascular disorder [Unknown]
  - Blood phosphorus increased [Recovered/Resolved]
  - Electrocardiogram ST segment elevation [Unknown]
  - Heart rate decreased [Unknown]
  - Myocardial infarction [Recovered/Resolved with Sequelae]

NARRATIVE: CASE EVENT DATE: 2018
